FAERS Safety Report 8133807-8 (Version None)
Quarter: 2012Q1

REPORT INFORMATION
  Report Type: 
  Country: None (occurrence: None)
  Receive Date: 20120213
  Receipt Date: 20120213
  Transmission Date: 20120608
  Serious: Yes (Hospitalization, Other)
  Sender: FDA-Public Use
  Company Number: None

PATIENT
  Age: 24 Year
  Sex: Male
  Weight: 89.811 kg

DRUGS (1)
  1. PROPECIA [Suspect]
     Indication: ANDROGENETIC ALOPECIA
     Dates: start: 20110410, end: 20110724

REACTIONS (29)
  - LOSS OF LIBIDO [None]
  - TESTICULAR ATROPHY [None]
  - PENILE VASCULAR DISORDER [None]
  - PANIC ATTACK [None]
  - SKIN INDURATION [None]
  - MUSCLE TWITCHING [None]
  - INSOMNIA [None]
  - GYNAECOMASTIA [None]
  - ERECTILE DYSFUNCTION [None]
  - ANXIETY [None]
  - FLAT AFFECT [None]
  - BODY TEMPERATURE DECREASED [None]
  - PENILE CURVATURE [None]
  - MENTAL IMPAIRMENT [None]
  - HAIR COLOUR CHANGES [None]
  - HAIR GROWTH ABNORMAL [None]
  - TESTICULAR PAIN [None]
  - DEPRESSION [None]
  - PENIS DISORDER [None]
  - SKIN DISCOLOURATION [None]
  - ALOPECIA [None]
  - ANORGASMIA [None]
  - DYSPHEMIA [None]
  - GENITAL HYPOAESTHESIA [None]
  - PENILE SIZE REDUCED [None]
  - NODULE [None]
  - MUSCLE ATROPHY [None]
  - FATIGUE [None]
  - COGNITIVE DISORDER [None]
